FAERS Safety Report 20136448 (Version 1)
Quarter: 2021Q4

REPORT INFORMATION
  Report Type: Spontaneous
  Country: GR (occurrence: GR)
  Receive Date: 20211201
  Receipt Date: 20211201
  Transmission Date: 20220303
  Serious: Yes (Hospitalization, Other)
  Sender: FDA-Public Use
  Company Number: GR-MYLANLABS-2021M1087067

PATIENT
  Age: 64 Year
  Sex: Female

DRUGS (4)
  1. TRACLEER [Interacting]
     Active Substance: BOSENTAN
     Indication: Prophylaxis
     Dosage: UNK
     Route: 048
  2. NINTEDANIB [Interacting]
     Active Substance: NINTEDANIB
     Indication: Interstitial lung disease
     Route: 065
  3. NINTEDANIB [Interacting]
     Active Substance: NINTEDANIB
     Indication: Systemic scleroderma
  4. PREDNISOLONE [Concomitant]
     Active Substance: PREDNISOLONE

REACTIONS (3)
  - Drug interaction [Unknown]
  - Bronchiectasis [Unknown]
  - Pulmonary embolism [Recovered/Resolved]
